FAERS Safety Report 25430610 (Version 1)
Quarter: 2025Q2

REPORT INFORMATION
  Report Type: Spontaneous
  Country: CN (occurrence: CN)
  Receive Date: 20250612
  Receipt Date: 20250612
  Transmission Date: 20250716
  Serious: Yes (Other)
  Sender: BRISTOL-MYERS SQUIBB COMPANY
  Company Number: CN-BRISTOL-MYERS SQUIBB COMPANY-2025-082762

PATIENT
  Age: 26 Year
  Sex: Female

DRUGS (1)
  1. SOTYKTU [Suspect]
     Active Substance: DEUCRAVACITINIB
     Indication: Psoriasis

REACTIONS (1)
  - Abdominal infection [Recovering/Resolving]
